FAERS Safety Report 7865893-4 (Version None)
Quarter: 2011Q4

REPORT INFORMATION
  Report Type: 
  Country: None (occurrence: None)
  Receive Date: 20111028
  Receipt Date: 20110316
  Transmission Date: 20120403
  Serious: No
  Sender: FDA-Public Use
  Company Number: US-GLAXOSMITHKLINE-A0918524A

PATIENT
  Age: 56 Year
  Sex: Female

DRUGS (14)
  1. ADVAIR DISKUS 100/50 [Suspect]
     Indication: CHRONIC OBSTRUCTIVE PULMONARY DISEASE
     Dosage: 1PUFF TWICE PER DAY
     Route: 055
     Dates: start: 19950101
  2. GEODON [Concomitant]
  3. HUMALOG [Concomitant]
  4. POTASSIUM CHLORIDE [Concomitant]
  5. QUINAPRIL [Concomitant]
  6. BUSPIRONE [Concomitant]
  7. DIVALPROEX SODIUM [Concomitant]
  8. PROAIR HFA [Concomitant]
  9. METFORMIN HCL [Concomitant]
  10. SYMLIN [Concomitant]
  11. LANTUS [Concomitant]
  12. ADVAIR DISKUS 100/50 [Concomitant]
  13. VITAMIN D SUPPLEMENT [Concomitant]
  14. RISPERIDONE [Concomitant]

REACTIONS (3)
  - PRODUCT QUALITY ISSUE [None]
  - DYSPNOEA [None]
  - DRUG INEFFECTIVE [None]
